FAERS Safety Report 9554763 (Version 9)
Quarter: 2015Q2

REPORT INFORMATION
  Report Type: Report from Study
  Country: GB (occurrence: GB)
  Receive Date: 20130926
  Receipt Date: 20150410
  Transmission Date: 20150821
  Serious: Yes (Hospitalization)
  Sender: FDA-Public Use
  Company Number: GB-ROCHE-1280419

PATIENT
  Age: 28 Year
  Sex: Female
  Weight: 59.1 kg

DRUGS (10)
  1. DEXAMETHASONE. [Concomitant]
     Active Substance: DEXAMETHASONE
     Dosage: TDS FOR 3 DAYS, 3 WEEKLY
     Route: 048
     Dates: start: 20130726, end: 20130909
  2. APREPITANT. [Concomitant]
     Active Substance: APREPITANT
     Dosage: DOSE: 125MG/80MG, FREQUENCY: 3 WEEKLY
     Route: 048
     Dates: start: 20130816, end: 20130908
  3. LOPERAMIDE [Concomitant]
     Active Substance: LOPERAMIDE
     Indication: DIARRHOEA
     Route: 048
     Dates: start: 20130726
  4. BEVACIZUMAB [Suspect]
     Active Substance: BEVACIZUMAB
     Indication: COLON CANCER
     Dosage: LAST DOSE PRIOR TO EVENT- 06/SEP/2013
     Route: 042
     Dates: start: 20130816
  5. CAPECITABINE. [Suspect]
     Active Substance: CAPECITABINE
     Indication: CHEMOTHERAPY
     Dosage: FREQUENCY: BD FOR 2 OUT OF EVERY 3 WEEK CYCLE
     Route: 048
     Dates: start: 20130726, end: 20130920
  6. DEXAMETHASONE. [Concomitant]
     Active Substance: DEXAMETHASONE
     Dosage: TDS FOR 3 DAYS, 3 WEEKLY.
     Route: 042
     Dates: start: 20130726, end: 20130906
  7. CYCLIZINE [Concomitant]
     Active Substance: CYCLIZINE
     Route: 048
     Dates: start: 20130906
  8. DOMPERIDON [Concomitant]
     Active Substance: DOMPERIDONE
     Route: 048
     Dates: start: 20130726
  9. HYOSCINE BUTYLBROMIDE [Concomitant]
     Active Substance: BUTYLSCOPOLAMINE
     Indication: ABDOMINAL PAIN
     Route: 048
     Dates: start: 201308
  10. ORAMORPH SR SUSTAINED RELEASE [Concomitant]
     Active Substance: MORPHINE SULFATE
     Indication: ANALGESIC THERAPY
     Route: 048
     Dates: start: 201306

REACTIONS (4)
  - Vomiting [Recovered/Resolved with Sequelae]
  - Constipation [Recovered/Resolved]
  - Enteritis [Recovered/Resolved with Sequelae]
  - Abdominal pain [Recovered/Resolved]

NARRATIVE: CASE EVENT DATE: 20130914
